FAERS Safety Report 8818206 (Version 1)
Quarter: 2012Q4

REPORT INFORMATION
  Report Type: 
  Country: US (occurrence: US)
  Receive Date: 20121001
  Receipt Date: 20121001
  Transmission Date: 20130627
  Serious: Yes (Other)
  Sender: FDA-Public Use
  Company Number: US-PFIZER INC-2012241791

PATIENT
  Age: 57 Year
  Sex: Female
  Weight: 58.96 kg

DRUGS (1)
  1. LYRICA [Suspect]
     Indication: ANXIETY
     Dosage: 200 mg, 2x/day
     Route: 048
     Dates: start: 201208

REACTIONS (3)
  - Anaemia [Unknown]
  - Increased appetite [Unknown]
  - Weight increased [Unknown]
